FAERS Safety Report 6999046-9 (Version None)
Quarter: 2010Q3

REPORT INFORMATION
  Report Type: 
  Country: None (occurrence: None)
  Receive Date: 20100920
  Receipt Date: 20100907
  Transmission Date: 20110219
  Serious: Yes (Hospitalization, Other)
  Sender: FDA-Public Use
  Company Number: US-ELI_LILLY_AND_COMPANY-US201008003841

PATIENT
  Sex: Male

DRUGS (10)
  1. FORTEO [Suspect]
     Indication: OSTEOPOROSIS
     Dosage: 20 UG, DAILY (1/D)
     Dates: start: 20091101
  2. PROTONIX [Concomitant]
     Dosage: 40 MG, DAILY (1/D)
  3. LISINOPRIL [Concomitant]
     Dosage: 10 MG, DAILY (1/D)
  4. FUROSEMIDE [Concomitant]
     Dosage: 20 MG, DAILY (1/D)
  5. COUMADIN [Concomitant]
     Dosage: 5 MG, DAILY (1/D)
  6. FLUTICASONE PROPIONATE [Concomitant]
     Dosage: 50 UG, DAILY (1/D)
  7. LIPITOR [Concomitant]
     Dosage: 20 MG, DAILY (1/D)
  8. METOPROLOL [Concomitant]
     Dosage: 25 MG, DAILY (1/D)
  9. FINASTERIDE [Concomitant]
     Dosage: 5 MG, DAILY (1/D)
  10. VIAGRA [Concomitant]
     Dosage: 25 MG, AS NEEDED

REACTIONS (2)
  - CARDIAC MURMUR [None]
  - MITRAL VALVE DISEASE [None]
